FAERS Safety Report 5765235-4 (Version None)
Quarter: 2008Q2

REPORT INFORMATION
  Report Type: 
  Country: None (occurrence: None)
  Receive Date: 20080609
  Receipt Date: 20080609
  Transmission Date: 20081010
  Serious: Yes (Death)
  Sender: FDA-Public Use
  Company Number: None

PATIENT
  Age: 54 Year
  Sex: Male
  Weight: 65.7716 kg

DRUGS (2)
  1. ARANESP [Suspect]
     Indication: PROPHYLAXIS
     Dosage: EVERY 3 WEEKS
  2. PROCRIT [Suspect]
     Dosage: 40,000 UNITS  ONE INJECTION

REACTIONS (5)
  - DEHYDRATION [None]
  - DRUG INEFFECTIVE [None]
  - EPISTAXIS [None]
  - MOUTH HAEMORRHAGE [None]
  - PULMONARY EMBOLISM [None]
